FAERS Safety Report 19352039 (Version 4)
Quarter: 2021Q3

REPORT INFORMATION
  Report Type: Report from Study
  Country: BR (occurrence: BR)
  Receive Date: 20210601
  Receipt Date: 20210713
  Transmission Date: 20211014
  Serious: Yes (Death, Hospitalization, Other)
  Sender: FDA-Public Use
  Company Number: NVSC2021BR076080

PATIENT
  Age: 56 Year
  Sex: Female
  Weight: 80 kg

DRUGS (2)
  1. FASLODEX [Concomitant]
     Active Substance: FULVESTRANT
     Indication: PRODUCT USED FOR UNKNOWN INDICATION
     Dosage: UNK (IN USE)
     Route: 065
     Dates: start: 20200804
  2. KISQALI [Suspect]
     Active Substance: RIBOCICLIB
     Indication: BREAST NEOPLASM
     Dosage: 3 DF, QD (BETWEEN FEB 2021 AND MAR 2021)
     Route: 048
     Dates: start: 20200925, end: 202103

REACTIONS (9)
  - Vomiting [Not Recovered/Not Resolved]
  - Hepatic failure [Not Recovered/Not Resolved]
  - Nausea [Not Recovered/Not Resolved]
  - Metastases to bone [Not Recovered/Not Resolved]
  - Hepatic encephalopathy [Fatal]
  - Drug ineffective [Unknown]
  - Metastases to liver [Fatal]
  - Feeding disorder [Not Recovered/Not Resolved]
  - Breast cancer [Fatal]

NARRATIVE: CASE EVENT DATE: 202104
